FAERS Safety Report 5157441-7 (Version None)
Quarter: 2006Q4

REPORT INFORMATION
  Report Type: 
  Country: None (occurrence: None)
  Receive Date: 20061127
  Receipt Date: 20061114
  Transmission Date: 20070319
  Serious: Yes (Hospitalization)
  Sender: FDA-Public Use
  Company Number: FR-ELI_LILLY_AND_COMPANY-FR200611002415

PATIENT
  Age: 21 Year
  Sex: Female

DRUGS (10)
  1. PROZAC [Suspect]
     Dosage: 20 MG, DAILY (1/D)
     Route: 048
     Dates: start: 20060728, end: 20060807
  2. CONTRAMAL [Concomitant]
     Dosage: 400 MG, DAILY (1/D)
     Route: 048
     Dates: start: 20060804, end: 20060807
  3. SOLU-MEDROL [Concomitant]
     Dosage: 1 MG, DAILY (1/D)
     Route: 042
     Dates: start: 20060727, end: 20060803
  4. LEXOMIL [Concomitant]
     Dosage: UNK, UNKNOWN
     Route: 065
  5. POTASSIUM CHLORIDE [Concomitant]
     Dosage: UNK, UNKNOWN
     Route: 065
  6. SODIUM CHLORIDE [Concomitant]
     Dosage: UNK, UNKNOWN
     Route: 065
  7. OMEPRAZOLE [Concomitant]
     Dosage: UNK, UNKNOWN
     Route: 065
  8. LOVENOX [Concomitant]
     Dosage: UNK, UNKNOWN
     Route: 065
  9. PERFALGAN                               /GFR/ [Concomitant]
     Dosage: UNK, UNKNOWN
     Route: 065
  10. TRIFLUCAN [Concomitant]
     Dosage: UNK, UNKNOWN
     Route: 065

REACTIONS (3)
  - BRAIN OEDEMA [None]
  - CEREBRAL HAEMORRHAGE [None]
  - LEUKOENCEPHALOPATHY [None]
